FAERS Safety Report 11650291 (Version 3)
Quarter: 2015Q4

REPORT INFORMATION
  Report Type: Report from Study
  Country: CA (occurrence: CA)
  Receive Date: 20151021
  Receipt Date: 20151203
  Transmission Date: 20160304
  Serious: Yes (Hospitalization, Other)
  Sender: FDA-Public Use
  Company Number: CA-ABBVIE-15K-028-1484488-00

PATIENT
  Sex: Female

DRUGS (1)
  1. HUMIRA [Suspect]
     Active Substance: ADALIMUMAB
     Indication: CROHN^S DISEASE
     Route: 058
     Dates: start: 20130821

REACTIONS (5)
  - Intestinal obstruction [Unknown]
  - Crohn^s disease [Not Recovered/Not Resolved]
  - Lipids abnormal [Unknown]
  - Cholangitis sclerosing [Unknown]
  - Drug level decreased [Not Recovered/Not Resolved]
